FAERS Safety Report 5265340-5 (Version None)
Quarter: 2007Q1

REPORT INFORMATION
  Report Type: 
  Country: None (occurrence: None)
  Receive Date: 20061213
  Receipt Date: 20040223
  Transmission Date: 20070707
  Serious: No
  Sender: FDA-Public Use
  Company Number: 2004UW03233

PATIENT
  Sex: Male

DRUGS (1)
  1. IRESSA [Suspect]
     Dosage: 250 MG PO
     Route: 048
     Dates: start: 20031101

REACTIONS (5)
  - CHEST DISCOMFORT [None]
  - COUGH [None]
  - DISEASE PROGRESSION [None]
  - HAEMOPTYSIS [None]
  - INFLUENZA [None]
